FAERS Safety Report 24794573 (Version 1)
Quarter: 2024Q4

REPORT INFORMATION
  Report Type: Spontaneous
  Country: US (occurrence: US)
  Receive Date: 20241231
  Receipt Date: 20241231
  Transmission Date: 20250114
  Serious: No
  Sender: BAYER HEALTHCARE PHARMACEUTICALS INC.
  Company Number: US-BAYER-2024A181731

PATIENT
  Sex: Female

DRUGS (3)
  1. ADEMPAS [Suspect]
     Active Substance: RIOCIGUAT
     Indication: Product used for unknown indication
     Dosage: UNK
     Route: 065
  2. ELIQUIS [Concomitant]
     Active Substance: APIXABAN
  3. AMBRISENTAN [Concomitant]
     Active Substance: AMBRISENTAN
     Indication: Pulmonary arterial hypertension
     Dosage: 10 MG, QD
     Route: 065
     Dates: start: 20240506

REACTIONS (6)
  - Nasal congestion [Unknown]
  - Dyspepsia [Unknown]
  - Somnolence [Unknown]
  - Chest discomfort [Recovered/Resolved]
  - Abdominal distension [Recovering/Resolving]
  - Dyspnoea exertional [Recovering/Resolving]
